FAERS Safety Report 20661197 (Version 1)
Quarter: 2022Q1

REPORT INFORMATION
  Report Type: Spontaneous
  Country: US (occurrence: US)
  Receive Date: 20220331
  Receipt Date: 20220331
  Transmission Date: 20220423
  Serious: Yes (Hospitalization, Other)
  Sender: FDA-Public Use
  Company Number: US-BRISTOL-MYERS SQUIBB COMPANY-2022-012140

PATIENT
  Age: 73 Year
  Sex: Female
  Weight: 57.15 kg

DRUGS (1)
  1. ZEPOSIA [Suspect]
     Active Substance: OZANIMOD HYDROCHLORIDE
     Indication: Multiple sclerosis
     Dosage: ONE SMALL CAPSULE EVERY NIGHT DOSE : NOT AVAILABLE;     FREQ : DAILY
     Route: 048
     Dates: start: 2021, end: 2022

REACTIONS (4)
  - Multiple sclerosis relapse [Unknown]
  - Vertigo [Unknown]
  - Confusional state [Unknown]
  - Hypertension [Unknown]

NARRATIVE: CASE EVENT DATE: 20220107
